FAERS Safety Report 12641542 (Version 2)
Quarter: 2016Q3

REPORT INFORMATION
  Report Type: Report from Study
  Country: US (occurrence: US)
  Receive Date: 20160810
  Receipt Date: 20160915
  Transmission Date: 20161109
  Serious: Yes (Hospitalization, Other)
  Sender: FDA-Public Use
  Company Number: US-GILEAD-2016-0226270

PATIENT
  Age: 48 Year
  Sex: Female
  Weight: 136.5 kg

DRUGS (31)
  1. NEURONTIN [Concomitant]
     Active Substance: GABAPENTIN
  2. ALDACTONE [Concomitant]
     Active Substance: SPIRONOLACTONE
  3. REVATIO [Concomitant]
     Active Substance: SILDENAFIL CITRATE
  4. DIURIL                             /00011801/ [Concomitant]
  5. LOVENOX [Concomitant]
     Active Substance: ENOXAPARIN SODIUM
  6. ZOFRAN [Concomitant]
     Active Substance: ONDANSETRON HYDROCHLORIDE
  7. KLOR-CON [Concomitant]
     Active Substance: POTASSIUM CHLORIDE
  8. REMODULIN [Suspect]
     Active Substance: TREPROSTINIL
     Indication: PULMONARY HYPERTENSION
     Dosage: 1.9 ML, Q1HR
     Route: 042
     Dates: start: 20150916
  9. ADCIRCA [Concomitant]
     Active Substance: TADALAFIL
  10. FERROUS SULFATE. [Concomitant]
     Active Substance: FERROUS SULFATE
  11. WELLBUTRIN [Concomitant]
     Active Substance: BUPROPION HYDROCHLORIDE
  12. COLACE [Concomitant]
     Active Substance: DOCUSATE SODIUM
  13. LEVOTHYROXINE. [Concomitant]
     Active Substance: LEVOTHYROXINE
  14. CLARITIN [Concomitant]
     Active Substance: LORATADINE
  15. MULTIVITAMIN                       /00097801/ [Concomitant]
     Active Substance: VITAMINS
  16. CYMBALTA [Concomitant]
     Active Substance: DULOXETINE HYDROCHLORIDE
  17. NORCO [Concomitant]
     Active Substance: ACETAMINOPHEN\HYDROCODONE BITARTRATE
  18. PAMELOR [Concomitant]
     Active Substance: NORTRIPTYLINE HYDROCHLORIDE
  19. INVANZ [Concomitant]
     Active Substance: ERTAPENEM SODIUM
  20. REMODULIN [Suspect]
     Active Substance: TREPROSTINIL
     Dosage: 0.06325 UG/KG, Q1MINUTE
     Route: 041
     Dates: start: 20101014
  21. ORENITRAM [Suspect]
     Active Substance: TREPROSTINIL
     Indication: PRODUCT USED FOR UNKNOWN INDICATION
     Dosage: UNK
     Route: 048
  22. NEXIUM [Concomitant]
     Active Substance: ESOMEPRAZOLE MAGNESIUM
  23. CARAFATE [Concomitant]
     Active Substance: SUCRALFATE
  24. TRACLEER [Concomitant]
     Active Substance: BOSENTAN
  25. FLONASE                            /00908302/ [Concomitant]
     Active Substance: MOMETASONE FUROATE
  26. PREVACID [Concomitant]
     Active Substance: LANSOPRAZOLE
  27. DEMADEX [Concomitant]
     Active Substance: TORSEMIDE
  28. AMBRISENTAN [Suspect]
     Active Substance: AMBRISENTAN
     Indication: PULMONARY HYPERTENSION
     Dosage: 10 MG, QD
     Route: 048
     Dates: start: 20151111
  29. LANOXIN [Concomitant]
     Active Substance: DIGOXIN
  30. OXYCONTIN [Concomitant]
     Active Substance: OXYCODONE HYDROCHLORIDE
  31. COUMADIN [Concomitant]
     Active Substance: WARFARIN SODIUM

REACTIONS (3)
  - Device related infection [Unknown]
  - Weight increased [Unknown]
  - Heart rate irregular [Recovered/Resolved]

NARRATIVE: CASE EVENT DATE: 201607
